FAERS Safety Report 6734397-4 (Version None)
Quarter: 2010Q2

REPORT INFORMATION
  Report Type: 
  Country: None (occurrence: None)
  Receive Date: 20100520
  Receipt Date: 20100510
  Transmission Date: 20101027
  Serious: Yes (Hospitalization)
  Sender: FDA-Public Use
  Company Number: FR-ELI_LILLY_AND_COMPANY-FR201005002611

PATIENT
  Age: 56 Year
  Sex: Male

DRUGS (8)
  1. OLANZAPINE [Suspect]
     Indication: SCHIZOPHRENIA
     Dosage: 20 MG, DAILY (1/D)
     Route: 065
     Dates: start: 20080501, end: 20080101
  2. HALOPERIDOL DECANOATE [Concomitant]
     Dosage: 3 MG, EVERY 3 WEEKS
     Route: 065
  3. LOXAPINE [Concomitant]
     Dosage: 100 MG, DAILY (1/D)
     Route: 065
  4. LOXAPINE [Concomitant]
     Dosage: 150 MG, DAILY (1/D)
     Route: 065
  5. AMISULPRIDE [Concomitant]
     Dosage: 800 MG, DAILY (1/D)
     Route: 065
  6. TROPATEPINE [Concomitant]
     Dosage: 10 MG, DAILY (1/D)
     Route: 065
  7. DIAZEPAM [Concomitant]
     Dosage: 10 MG, DAILY (1/D)
     Route: 065
  8. CLORAZEPATE DIPOTASSIUM [Concomitant]
     Dosage: 50 MG, DAILY (1/D)
     Route: 065

REACTIONS (3)
  - ANAEMIA MEGALOBLASTIC [None]
  - GASTROOESOPHAGEAL REFLUX DISEASE [None]
  - PANCYTOPENIA [None]
